FAERS Safety Report 6268074-3 (Version None)
Quarter: 2009Q3

REPORT INFORMATION
  Report Type: 
  Country: None (occurrence: None)
  Receive Date: 20090713
  Receipt Date: 20090702
  Transmission Date: 20100115
  Serious: Yes (Hospitalization)
  Sender: FDA-Public Use
  Company Number: 2009008161

PATIENT
  Age: 56 Year
  Sex: Male

DRUGS (2)
  1. ACTIQ [Suspect]
     Indication: PAIN
     Dosage: 200 MCG, BU
     Dates: start: 20080108, end: 20090204
  2. DURAGESIC MATRIX (PARACETAMOL, ORPHENADRINE CITRATE) [Suspect]
     Indication: PAIN
     Dosage: 50 MCG, TOPICAL
     Route: 061
     Dates: start: 20080108, end: 20090204

REACTIONS (2)
  - ACUTE RESPIRATORY FAILURE [None]
  - DEPRESSED LEVEL OF CONSCIOUSNESS [None]
